FAERS Safety Report 19175718 (Version 5)
Quarter: 2021Q2

REPORT INFORMATION
  Report Type: Report from Study
  Country: CA (occurrence: CA)
  Receive Date: 20210423
  Receipt Date: 20210504
  Transmission Date: 20210717
  Serious: Yes (Death, Life-Threatening, Hospitalization)
  Sender: FDA-Public Use
  Company Number: CA-EISAI MEDICAL RESEARCH-EC-2021-091513

PATIENT
  Age: 50 Year
  Sex: Male
  Weight: 74.8 kg

DRUGS (9)
  1. LENVATINIB [Suspect]
     Active Substance: LENVATINIB
     Indication: GASTRIC CANCER
     Route: 048
     Dates: start: 20210302, end: 20210414
  2. PANTOPRAZOLE [Concomitant]
     Active Substance: PANTOPRAZOLE
     Dates: start: 202004, end: 20210415
  3. DILAUDID [Concomitant]
     Active Substance: HYDROMORPHONE HYDROCHLORIDE
     Dates: start: 20210412, end: 20210415
  4. PEMBROLIZUMAB. [Suspect]
     Active Substance: PEMBROLIZUMAB
     Route: 041
     Dates: start: 20210413, end: 20210413
  5. OLANZAPINE. [Concomitant]
     Active Substance: OLANZAPINE
     Dates: start: 202006, end: 20210415
  6. METOCLOPRAMIDE. [Concomitant]
     Active Substance: METOCLOPRAMIDE
     Dates: start: 202006, end: 20210415
  7. PEMBROLIZUMAB. [Suspect]
     Active Substance: PEMBROLIZUMAB
     Indication: GASTRIC CANCER
     Route: 041
     Dates: start: 20210302, end: 20210323
  8. INNOHEP [Concomitant]
     Active Substance: TINZAPARIN SODIUM
     Dates: start: 20200821, end: 20210415
  9. FENTANYL. [Concomitant]
     Active Substance: FENTANYL
     Dates: start: 20210315, end: 20210417

REACTIONS (1)
  - Oesophageal perforation [Fatal]

NARRATIVE: CASE EVENT DATE: 20210414
